FAERS Safety Report 6852099-0 (Version None)
Quarter: 2010Q3

REPORT INFORMATION
  Report Type: 
  Country: None (occurrence: None)
  Receive Date: 20100717
  Receipt Date: 20071106
  Transmission Date: 20110219
  Serious: Yes (Other)
  Sender: FDA-Public Use
  Company Number: US-PFIZER INC-2007094552

PATIENT
  Sex: Male
  Weight: 97.5 kg

DRUGS (5)
  1. CHANTIX [Suspect]
     Indication: SMOKING CESSATION THERAPY
     Dates: start: 20070925, end: 20070929
  2. BACLOFEN [Concomitant]
  3. MIRTAZAPINE [Concomitant]
  4. HYDROCODONE [Concomitant]
  5. COPAXONE [Concomitant]

REACTIONS (4)
  - ABNORMAL DREAMS [None]
  - RESTLESS LEGS SYNDROME [None]
  - SLEEP DISORDER [None]
  - SUICIDAL IDEATION [None]
